FAERS Safety Report 5655785-3 (Version None)
Quarter: 2008Q1

REPORT INFORMATION
  Report Type: 
  Country: None (occurrence: None)
  Receive Date: 20080307
  Receipt Date: 20080225
  Transmission Date: 20080703
  Serious: Yes (Hospitalization, Disabling)
  Sender: FDA-Public Use
  Company Number: US-GENENTECH-216528

PATIENT
  Sex: Female
  Weight: 72 kg

DRUGS (8)
  1. EFALIZUMAB [Suspect]
     Indication: PSORIASIS
     Dosage: 1 MG/KG, 1/WEEK
     Route: 058
     Dates: start: 20050309, end: 20050720
  2. NEXIUM [Concomitant]
     Indication: GASTROOESOPHAGEAL REFLUX DISEASE
     Dosage: 40 MG, QD
     Route: 048
     Dates: start: 19950101
  3. WELLBUTRIN XL [Concomitant]
     Indication: DEPRESSION
     Dosage: 150 MG, QD
     Route: 048
     Dates: start: 20030101
  4. VITAMIN E [Concomitant]
     Indication: MEDICAL DIET
     Dosage: 400 IU, QD
     Route: 048
     Dates: start: 19900101
  5. CENTRUM SILVER [Concomitant]
     Indication: MEDICAL DIET
     Dosage: UNK, QD
     Route: 048
     Dates: start: 19900101
  6. DOVONEX [Concomitant]
     Indication: PSORIASIS
     Dosage: UNK, QD
     Route: 061
     Dates: start: 20000302
  7. BIAXIN XL [Concomitant]
     Indication: CHRONIC SINUSITIS
     Dosage: 500 MG, BID
     Route: 048
     Dates: start: 20050708, end: 20050725
  8. FLONASE [Concomitant]
     Indication: CHRONIC SINUSITIS
     Dosage: 50 G, BID
     Route: 045
     Dates: start: 20050708, end: 20050725

REACTIONS (14)
  - ALANINE AMINOTRANSFERASE INCREASED [None]
  - BLOOD ALKALINE PHOSPHATASE INCREASED [None]
  - BLOOD CREATININE INCREASED [None]
  - BONE MARROW DISORDER [None]
  - CANDIDIASIS [None]
  - DIARRHOEA [None]
  - ENTEROCOCCAL INFECTION [None]
  - HEADACHE [None]
  - IRON DEFICIENCY ANAEMIA [None]
  - LIPOMA [None]
  - PERIPHERAL T-CELL LYMPHOMA UNSPECIFIED [None]
  - SEPSIS [None]
  - SPUTUM CULTURE POSITIVE [None]
  - WEIGHT DECREASED [None]
